FAERS Safety Report 4632408-3 (Version None)
Quarter: 2005Q2

REPORT INFORMATION
  Report Type: 
  Country: None (occurrence: None)
  Receive Date: 20050411
  Receipt Date: 20050330
  Transmission Date: 20051028
  Serious: Yes (Hospitalization)
  Sender: FDA-Public Use
  Company Number: FR-BRISTOL-MYERS SQUIBB COMPANY-12918348

PATIENT
  Age: 52 Year
  Sex: Male

DRUGS (5)
  1. MUCOMYST TABS 200 MG [Suspect]
     Route: 048
     Dates: start: 20050209
  2. BACTRIM [Suspect]
     Indication: POSTOPERATIVE INFECTION
     Dates: start: 20050203, end: 20050210
  3. FUCIDINE CAP [Suspect]
     Dates: start: 20050203
  4. PREVISCAN [Suspect]
     Indication: THROMBOSIS PROPHYLAXIS
     Dates: start: 20040601
  5. RIMACTANE [Concomitant]
     Dates: start: 20050201

REACTIONS (2)
  - LEUKOPENIA [None]
  - NEUTROPENIA [None]
